FAERS Safety Report 7705790-8 (Version None)
Quarter: 2011Q3

REPORT INFORMATION
  Report Type: 
  Country: None (occurrence: None)
  Receive Date: 20110824
  Receipt Date: 20110824
  Transmission Date: 20111222
  Serious: Yes (Hospitalization)
  Sender: FDA-Public Use
  Company Number: None

PATIENT
  Age: 81 Year
  Sex: Female
  Weight: 63.502 kg

DRUGS (3)
  1. DULOXETIME HYDROCHLORIDE [Concomitant]
     Indication: DEPRESSION
     Dosage: 30MG
     Route: 048
  2. DULOXETIME HYDROCHLORIDE [Concomitant]
     Indication: ANXIETY
     Dosage: 30MG
     Route: 048
  3. METHYLENE BLUE [Suspect]
     Indication: SURGERY
     Dosage: 318MG
     Route: 042

REACTIONS (5)
  - MENTAL DISORDER [None]
  - SEROTONIN SYNDROME [None]
  - RESTLESSNESS [None]
  - CONFUSIONAL STATE [None]
  - INFUSION SITE HAEMORRHAGE [None]
